FAERS Safety Report 5013696-0 (Version None)
Quarter: 2006Q2

REPORT INFORMATION
  Report Type: 
  Country: None (occurrence: None)
  Receive Date: 20060530
  Receipt Date: 20060518
  Transmission Date: 20061013
  Serious: Yes (Other)
  Sender: FDA-Public Use
  Company Number: IT-BRISTOL-MYERS SQUIBB COMPANY-13384094

PATIENT
  Age: 35 Year
  Sex: Male

DRUGS (3)
  1. STAVUDINE [Suspect]
     Indication: HIV TEST POSITIVE
     Dates: start: 19990301
  2. INDINAVIR [Suspect]
     Indication: HIV TEST POSITIVE
     Dates: start: 19990301
  3. LAMIVUDINE [Suspect]
     Indication: HIV TEST POSITIVE
     Dates: start: 19990301

REACTIONS (1)
  - PERIARTHRITIS [None]
